FAERS Safety Report 20807742 (Version 1)
Quarter: 2022Q2

REPORT INFORMATION
  Report Type: Spontaneous
  Country: US (occurrence: None)
  Receive Date: 20220509
  Receipt Date: 20220509
  Transmission Date: 20220721
  Serious: No
  Sender: FDA-Public Use
  Company Number: None

PATIENT
  Age: 32 Year
  Sex: Female
  Weight: 57 kg

DRUGS (1)
  1. GADOBUTROL [Suspect]
     Active Substance: GADOBUTROL
     Indication: Cardiac imaging procedure
     Dosage: FREQUENCY : ONCE;?
     Route: 042
     Dates: start: 20220104, end: 20220104

REACTIONS (3)
  - Infusion related reaction [None]
  - Paraesthesia [None]
  - Swelling of eyelid [None]

NARRATIVE: CASE EVENT DATE: 20220104
